FAERS Safety Report 16902199 (Version 5)
Quarter: 2020Q1

REPORT INFORMATION
  Report Type: Spontaneous
  Country: US (occurrence: US)
  Receive Date: 20191010
  Receipt Date: 20200320
  Transmission Date: 20200409
  Serious: Yes (Other)
  Sender: FDA-Public Use
  Company Number: US-JNJFOC-20191004503

PATIENT
  Sex: Female

DRUGS (1)
  1. TYLENOL [Suspect]
     Active Substance: ACETAMINOPHEN
     Indication: PRODUCT USED FOR UNKNOWN INDICATION

REACTIONS (8)
  - Nasal septum disorder [Recovering/Resolving]
  - Drug abuse [Unknown]
  - Laryngeal injury [Recovering/Resolving]
  - Pharyngeal necrosis [Recovering/Resolving]
  - Nasal necrosis [Recovering/Resolving]
  - Eustachian tube dysfunction [Recovering/Resolving]
  - Nasal crusting [Recovering/Resolving]
  - Dysphonia [Recovering/Resolving]
